FAERS Safety Report 6418335-X (Version None)
Quarter: 2009Q4

REPORT INFORMATION
  Report Type: 
  Country: None (occurrence: None)
  Receive Date: 20091028
  Receipt Date: 20091021
  Transmission Date: 20100525
  Serious: Yes (Life-Threatening, Other)
  Sender: FDA-Public Use
  Company Number: US-BAXTER-2009BH012311

PATIENT
  Age: 50 Year
  Sex: Female
  Weight: 99 kg

DRUGS (16)
  1. HEPARIN SODIUM INJECTION [Suspect]
     Indication: CATHETER PLACEMENT
     Route: 042
     Dates: start: 20070816
  2. HEPARIN SODIUM INJECTION [Suspect]
     Indication: PROPHYLAXIS
     Route: 042
     Dates: start: 20070816
  3. HEPARIN SODIUM INJECTION [Suspect]
     Route: 042
     Dates: start: 20070816
  4. HEPARIN SODIUM INJECTION [Suspect]
     Route: 042
     Dates: start: 20070816
  5. HEPARIN SODIUM INJECTION [Suspect]
     Route: 065
     Dates: start: 20070801
  6. HEPARIN SODIUM INJECTION [Suspect]
     Route: 065
     Dates: start: 20070801
  7. HEPARIN SODIUM INJECTION [Suspect]
     Route: 065
     Dates: start: 20070801
  8. HEPARIN SODIUM INJECTION [Suspect]
     Route: 065
     Dates: start: 20070801
  9. SENSIPAR [Concomitant]
     Indication: DRUG USE FOR UNKNOWN INDICATION
     Route: 065
  10. CLONIDINE HCL [Concomitant]
     Indication: DRUG USE FOR UNKNOWN INDICATION
     Route: 065
  11. NEPHRO-VITE RX [Concomitant]
     Indication: DRUG USE FOR UNKNOWN INDICATION
     Route: 065
  12. ASPIRIN [Concomitant]
     Indication: DRUG USE FOR UNKNOWN INDICATION
     Route: 065
  13. SERTRALINE HYDROCHLORIDE [Concomitant]
     Indication: DRUG USE FOR UNKNOWN INDICATION
     Route: 065
  14. HECTOROL [Concomitant]
     Indication: DRUG USE FOR UNKNOWN INDICATION
     Route: 065
  15. NEXIUM [Concomitant]
     Indication: DRUG USE FOR UNKNOWN INDICATION
     Route: 065
  16. RENAGEL [Concomitant]
     Indication: DRUG USE FOR UNKNOWN INDICATION
     Route: 065

REACTIONS (11)
  - BLOOD PRESSURE DECREASED [None]
  - BLOOD SODIUM INCREASED [None]
  - CARDIAC FAILURE CONGESTIVE [None]
  - DIALYSIS [None]
  - DYSPNOEA [None]
  - HYPERHIDROSIS [None]
  - HYPERSENSITIVITY [None]
  - INJURY [None]
  - LETHARGY [None]
  - NO REACTION ON PREVIOUS EXPOSURE TO DRUG [None]
  - WEIGHT INCREASED [None]
